FAERS Safety Report 9458158 (Version 2)
Quarter: 2013Q4

REPORT INFORMATION
  Report Type: Spontaneous
  Country: JP (occurrence: JP)
  Receive Date: 20130814
  Receipt Date: 20131009
  Transmission Date: 20140711
  Serious: Yes (Hospitalization)
  Sender: FDA-Public Use
  Company Number: JP-JNJFOC-20130806358

PATIENT
  Age: 78 Year
  Sex: Female

DRUGS (8)
  1. XARELTO [Suspect]
     Indication: THROMBOSIS PROPHYLAXIS
     Dosage: FOR 10 DAYS
     Route: 048
     Dates: start: 20130801
  2. XARELTO [Suspect]
     Indication: THROMBOSIS PROPHYLAXIS
     Route: 048
     Dates: start: 20130811
  3. XARELTO [Suspect]
     Indication: THROMBOSIS PROPHYLAXIS
     Route: 048
     Dates: start: 20130426, end: 2013
  4. LIDOCAINE HYDROCHLORIDE [Concomitant]
     Indication: LOCAL ANAESTHESIA
     Route: 065
  5. DIGOXIN [Concomitant]
     Indication: ATRIAL FIBRILLATION
     Route: 048
     Dates: start: 20111107
  6. VASOLAN [Concomitant]
     Indication: ATRIAL FIBRILLATION
     Route: 048
     Dates: start: 20111107
  7. BLOPRESS [Concomitant]
     Indication: HYPERTENSION
     Route: 048
     Dates: start: 20110628
  8. BLOPRESS [Concomitant]
     Indication: HYPERTENSION
     Route: 048
     Dates: start: 20110614, end: 20110627

REACTIONS (2)
  - Embolic stroke [Recovered/Resolved]
  - Vertebral artery occlusion [Recovered/Resolved]
